FAERS Safety Report 8546219 (Version 2)
Quarter: 2012Q4

REPORT INFORMATION
  Report Type: 
  Country: US (occurrence: US)
  Receive Date: 20120504
  Receipt Date: 20120907
  Transmission Date: 20130627
  Serious: Yes (Hospitalization)
  Sender: FDA-Public Use
  Company Number: US-BAYER-2012-042590

PATIENT
  Age: 43 Year
  Sex: Female
  Weight: 66.67 kg

DRUGS (5)
  1. YAZ [Suspect]
     Indication: MIGRAINE
     Dosage: UNK
     Dates: start: 200609, end: 20061107
  2. YAZ [Suspect]
     Indication: MENORRHAGIA
  3. MULTIVITAMIN [Concomitant]
  4. EXTRA STRENGTH TYLENOL [Concomitant]
  5. PERCOCET [Concomitant]

REACTIONS (12)
  - Pulmonary embolism [None]
  - Deep vein thrombosis [None]
  - Haematuria [None]
  - Haematoma [None]
  - Injury [None]
  - Pain [None]
  - Dyspnoea [None]
  - Pain in extremity [None]
  - Oedema peripheral [None]
  - Contusion [None]
  - Tenderness [None]
  - Chest pain [None]
